FAERS Safety Report 17151739 (Version 2)
Quarter: 2019Q4

REPORT INFORMATION
  Report Type: Spontaneous
  Country: US (occurrence: US)
  Receive Date: 20191213
  Receipt Date: 20191231
  Transmission Date: 20200122
  Serious: Yes (Other)
  Sender: FDA-Public Use
  Company Number: US-009507513-1912USA002082

PATIENT
  Age: 19 Year
  Sex: Female
  Weight: 71.66 kg

DRUGS (1)
  1. NEXPLANON [Suspect]
     Active Substance: ETONOGESTREL
     Indication: CONTRACEPTION
     Dosage: 1 ROD EVERY 3 YEARS
     Route: 059
     Dates: start: 201702

REACTIONS (5)
  - Unintended pregnancy [Not Recovered/Not Resolved]
  - Device deployment issue [Not Recovered/Not Resolved]
  - Pregnancy with implant contraceptive [Not Recovered/Not Resolved]
  - Complication associated with device [Not Recovered/Not Resolved]
  - Menstruation irregular [Unknown]

NARRATIVE: CASE EVENT DATE: 20190630
